FAERS Safety Report 5794850-7 (Version None)
Quarter: 2008Q2

REPORT INFORMATION
  Report Type: 
  Country: None (occurrence: None)
  Receive Date: 20080630
  Receipt Date: 20080616
  Transmission Date: 20081010
  Serious: Yes (Other)
  Sender: FDA-Public Use
  Company Number: JP-AVENTIS-200811970JP

PATIENT

DRUGS (1)
  1. OPTICLIK (INSULIN INJECTION PEN) [Suspect]
     Dates: start: 20080401, end: 20080616

REACTIONS (2)
  - DEVICE MALFUNCTION [None]
  - NO ADVERSE EVENT [None]
